FAERS Safety Report 10036112 (Version 2)
Quarter: 2014Q2

REPORT INFORMATION
  Report Type: Spontaneous
  Country: US (occurrence: US)
  Receive Date: 20140325
  Receipt Date: 20140507
  Transmission Date: 20141212
  Serious: Yes (Hospitalization, Other)
  Sender: FDA-Public Use
  Company Number: US-B.I. PHARMACEUTICALS,INC./RIDGEFIELD-2014-BI-11784BP

PATIENT
  Age: 50 Year
  Sex: Female
  Weight: 64 kg

DRUGS (9)
  1. SPIRIVA [Suspect]
     Indication: CHRONIC OBSTRUCTIVE PULMONARY DISEASE
     Dosage: 18 MCG
     Route: 055
     Dates: start: 2007
  2. SPIRIVA [Suspect]
     Dosage: 18 MCG
     Route: 048
     Dates: start: 20140317, end: 20140317
  3. DILANTIN [Concomitant]
     Indication: EPILEPSY
     Dosage: 300 MG
     Route: 048
  4. KLONOPIN [Concomitant]
     Indication: EPILEPSY
     Dosage: 3 MG
     Route: 048
  5. OPANA ER [Concomitant]
     Indication: BACK PAIN
     Dosage: 400 MG
     Route: 048
  6. NEXIUM [Concomitant]
     Indication: GASTROOESOPHAGEAL REFLUX DISEASE
     Dosage: 40 MG
     Route: 048
  7. ALBUTEROL INHALER [Concomitant]
     Dosage: 4 PUF
     Route: 055
  8. CALCIUM [Concomitant]
     Route: 048
  9. VITAMIN D [Concomitant]
     Route: 048

REACTIONS (10)
  - Lung neoplasm malignant [Not Recovered/Not Resolved]
  - Cyst [Recovered/Resolved]
  - Hypoaesthesia [Recovered/Resolved]
  - Back pain [Recovered/Resolved]
  - Metastasis [Not Recovered/Not Resolved]
  - Cyst [Recovered/Resolved]
  - Nausea [Not Recovered/Not Resolved]
  - Vomiting [Not Recovered/Not Resolved]
  - Breakthrough pain [Not Recovered/Not Resolved]
  - Incorrect route of drug administration [Recovered/Resolved]
